FAERS Safety Report 8548800-0 (Version None)
Quarter: 2012Q3

REPORT INFORMATION
  Report Type: 
  Country: None (occurrence: None)
  Receive Date: 20120730
  Receipt Date: 20120719
  Transmission Date: 20120928
  Serious: Yes (Hospitalization)
  Sender: FDA-Public Use
  Company Number: US-US-EMD SERONO, INC.-7149024

PATIENT
  Sex: Female
  Weight: 90 kg

DRUGS (4)
  1. TIZANIDINE HCL [Concomitant]
     Indication: NEURALGIA
  2. CELEBREX [Concomitant]
     Indication: PAIN
     Dosage: IN THE MORNING
  3. REBIF [Suspect]
     Indication: MULTIPLE SCLEROSIS
     Route: 058
     Dates: start: 20040202, end: 20120601
  4. REBIF [Suspect]
     Route: 058
     Dates: start: 20120601

REACTIONS (8)
  - MEMORY IMPAIRMENT [None]
  - WEIGHT INCREASED [None]
  - MULTIPLE SCLEROSIS RELAPSE [None]
  - DRUG HYPERSENSITIVITY [None]
  - X-RAY ABNORMAL [None]
  - PAIN IN EXTREMITY [None]
  - BACK PAIN [None]
  - ARTHRALGIA [None]
